FAERS Safety Report 9695136 (Version 3)
Quarter: 2014Q1

REPORT INFORMATION
  Report Type: Spontaneous
  Country: DE (occurrence: DE)
  Receive Date: 20131119
  Receipt Date: 20140331
  Transmission Date: 20141002
  Serious: Yes (Other)
  Sender: FDA-Public Use
  Company Number: DE-JNJFOC-20131110319

PATIENT
  Age: 86 Year
  Sex: Female
  Weight: 87 kg

DRUGS (5)
  1. XARELTO [Suspect]
     Indication: PRODUCT USED FOR UNKNOWN INDICATION
     Route: 048
     Dates: start: 20130502, end: 20131205
  2. HYDROCHLOROTHIAZIDE W/VALSARTAN [Concomitant]
     Route: 065
  3. FENTANYL [Concomitant]
     Route: 065
  4. DIHYDRALAZINE SULFATE [Concomitant]
     Route: 065
  5. FUROSEMID [Concomitant]
     Indication: ATRIAL FIBRILLATION
     Route: 065

REACTIONS (2)
  - Renal impairment [Recovered/Resolved]
  - Renal function test abnormal [Recovered/Resolved]
